FAERS Safety Report 12108444 (Version 4)
Quarter: 2016Q2

REPORT INFORMATION
  Report Type: Spontaneous
  Country: US (occurrence: US)
  Receive Date: 20160224
  Receipt Date: 20160526
  Transmission Date: 20160815
  Serious: Yes (Other)
  Sender: FDA-Public Use
  Company Number: US-PFIZER INC-2016092329

PATIENT
  Age: 58 Year
  Sex: Female
  Weight: 113 kg

DRUGS (5)
  1. IBRANCE [Suspect]
     Active Substance: PALBOCICLIB
     Indication: BREAST CANCER METASTATIC
     Dosage: 100 MG, CYCLIC (1 CAP DAY 1-DAY 21, EVERY 28 DAYS)
     Route: 048
     Dates: start: 20150919
  2. IBRANCE [Suspect]
     Active Substance: PALBOCICLIB
     Dosage: UNK
  3. LETROZOLE. [Concomitant]
     Active Substance: LETROZOLE
     Dosage: UNK
  4. IBRANCE [Suspect]
     Active Substance: PALBOCICLIB
     Dosage: UNK
  5. IBRANCE [Suspect]
     Active Substance: PALBOCICLIB
     Dosage: UNK

REACTIONS (4)
  - Joint stiffness [Not Recovered/Not Resolved]
  - Gout [Unknown]
  - Pain in extremity [Recovering/Resolving]
  - Rheumatic fever [Unknown]

NARRATIVE: CASE EVENT DATE: 20150929
